FAERS Safety Report 9367260 (Version 1)
Quarter: 2013Q2

REPORT INFORMATION
  Report Type: Report from Study
  Country: US (occurrence: US)
  Receive Date: 20130625
  Receipt Date: 20130625
  Transmission Date: 20140414
  Serious: Yes (Other)
  Sender: FDA-Public Use
  Company Number: US-ABBOTT-13P-163-1109355-00

PATIENT
  Age: 20 Year
  Sex: 0

DRUGS (11)
  1. HUMIRA [Suspect]
     Indication: PSORIASIS
     Route: 058
     Dates: start: 2009, end: 201004
  2. VITAMIN D [Concomitant]
     Indication: VITAMIN SUPPLEMENTATION
  3. ABILIFY [Concomitant]
     Indication: DEPRESSION
  4. EFFEXOR XR [Concomitant]
     Indication: DEPRESSION
  5. PHENTERMINE [Concomitant]
     Indication: WEIGHT DECREASED
  6. AMBIEN [Concomitant]
     Indication: INSOMNIA
     Dosage: AT BEDTIME
  7. VALIUM [Concomitant]
     Indication: PANIC ATTACK
     Dosage: .5 - 1 TAB EVERY 8HOURS AS NEEDED
  8. LIDOCAINE [Concomitant]
     Indication: PRODUCT USED FOR UNKNOWN INDICATION
     Dosage: TO APPLY TO AREA BEFORE INJECTIONS
  9. TOPROL [Concomitant]
     Indication: HYPERTENSION
  10. NORCO [Concomitant]
     Indication: HEADACHE
     Dosage: 1 EVERY 4 HOURS AS NEEDED
  11. FIORICET [Concomitant]
     Indication: HEADACHE
     Dosage: EVERY 2-4 HOURS AS NEEDED

REACTIONS (1)
  - Abortion spontaneous [Unknown]
